FAERS Safety Report 5077935-2 (Version None)
Quarter: 2006Q3

REPORT INFORMATION
  Report Type: 
  Country: None (occurrence: None)
  Receive Date: 20060808
  Receipt Date: 20060726
  Transmission Date: 20061208
  Serious: Yes (Hospitalization, Other)
  Sender: FDA-Public Use
  Company Number: HQWYE488328JUL06

PATIENT
  Age: 53 Year
  Sex: Male

DRUGS (14)
  1. CEFTRIAXONE, CONTROL FOR TIGECYCLINE (CEFTRIAXONE, CONTROL FOR TIGECYC [Suspect]
     Indication: PERITONITIS
     Dosage: 2 G 1X PER 1 DAY, INTRAVENOUS
     Route: 042
     Dates: start: 20060626
  2. METRONIDAZOLE, CONTROL FOR TIGECYCLINE (METRONIDAZOLE,  CONTROL FOR TI [Suspect]
     Indication: PERITONITIS
     Dosage: 500 MG 1X PER 8 HR, INTRAVENOUS
     Route: 042
     Dates: start: 20060626
  3. FUROSEMIDE [Concomitant]
  4. SPIRIX (SPIRONOLACTONE) [Concomitant]
  5. ANTABUS (DISULFIRAM) [Concomitant]
  6. B COMPLEX (NICOTINAMIDE/PYRIDOXINE HYDROCHLORIDE/RIBOFLAVIN/THIAMINE H [Concomitant]
  7. TRIOMIN (PERPHENAZINE) [Concomitant]
  8. DIGOXIN [Concomitant]
  9. CORODIL (ENALAPRIL) [Concomitant]
  10. IRON (IRON) [Concomitant]
  11. FRAXIPARIN (HEPARIN-FRACTION, CALCIUM SALT) [Concomitant]
  12. MARIVARIN (WARFARIN) [Concomitant]
  13. METOPROLOL SUCCINATE [Concomitant]
  14. TRAZOLAM (TRAZODONE HYDROCHLORIDE) [Concomitant]

REACTIONS (1)
  - ABDOMINAL ABSCESS [None]
